FAERS Safety Report 4903668-6 (Version None)
Quarter: 2006Q1

REPORT INFORMATION
  Report Type: 
  Country: None (occurrence: None)
  Receive Date: 20060202
  Receipt Date: 20060124
  Transmission Date: 20060701
  Serious: Yes (Hospitalization)
  Sender: FDA-Public Use
  Company Number: 2006007635

PATIENT
  Age: 70 Year
  Sex: Male

DRUGS (6)
  1. CELEBREX [Suspect]
     Indication: ILL-DEFINED DISORDER
     Dosage: 2 DOSE FORMS (1 IN 1 D), ORAL
     Route: 048
     Dates: start: 20010505, end: 20031105
  2. PREVISCAN (FLUINDIONE) [Suspect]
     Indication: ILL-DEFINED DISORDER
     Dosage: 5 MG (20 MG, 1 IN 1 D), ORAL
     Route: 048
     Dates: start: 20010505
  3. ANTALVIC (DEXTROPOROPOXYPHENE HYDROCHLORIDE) [Concomitant]
  4. ENALAPRIL MALEATE W/HYDROCHLOROTIAZIDE (ENALAPRIL MALEATE, HYDROCHLORO [Concomitant]
  5. FENOFIBRATE [Concomitant]
  6. AMIODARONE HCL [Concomitant]

REACTIONS (8)
  - DRUG INTERACTION [None]
  - DYSPNOEA EXERTIONAL [None]
  - HAEMOGLOBIN DECREASED [None]
  - INTERNATIONAL NORMALISED RATIO INCREASED [None]
  - MALAISE [None]
  - MELAENA [None]
  - PALLOR [None]
  - SELF-MEDICATION [None]
